FAERS Safety Report 8789530 (Version 1)
Quarter: 2012Q4

REPORT INFORMATION
  Report Type: Spontaneous
  Country: US (occurrence: None)
  Receive Date: 20120905
  Receipt Date: 20120905
  Transmission Date: 20130627
  Serious: Yes (Other)
  Sender: FDA-Public Use
  Company Number: FK201202557

PATIENT
  Age: 62 Year

DRUGS (4)
  1. DOXORUBICIN [Suspect]
     Indication: BREAST CANCER
     Dosage: 60 MG/M2, EVERY 21 DAYS
  2. CYCLOPHOSPHAMIDE [Suspect]
     Indication: BREAST CANCER
     Dosage: 600 MG/M2, EVERY 21 DAYS
  3. ANASTROZOLE [Suspect]
     Indication: BREAST CANCER
     Dosage: 1 MG, 3 DAYS (IN EACH CYCLE)
  4. DEXAMETHASONE [Suspect]
     Indication: BREAST CANCER
     Dosage: 16 MG, 3 DAYS (IN EACH CYCLE)

REACTIONS (11)
  - Staphylococcal infection [None]
  - Pain in jaw [None]
  - Swelling face [None]
  - Paraesthesia [None]
  - Purulent discharge [None]
  - Sinusitis [None]
  - Osteonecrosis of jaw [None]
  - Accidental overdose [None]
  - Myopathy [None]
  - Oroantral fistula [None]
  - Device misuse [None]
